FAERS Safety Report 25943970 (Version 2)
Quarter: 2025Q4

REPORT INFORMATION
  Report Type: Spontaneous
  Country: EU (occurrence: EU)
  Receive Date: 20251021
  Receipt Date: 20251111
  Transmission Date: 20260117
  Serious: Yes (Other)
  Sender: TEVA
  Company Number: EU-TEVA-VS-3382911

PATIENT
  Age: 21 Year
  Sex: Male

DRUGS (11)
  1. METHOTREXATE [Suspect]
     Active Substance: METHOTREXATE
     Indication: Burkitt^s lymphoma
     Dosage: GMALL 2002 PROTOCOL, CYCLE A
     Route: 037
  2. METHOTREXATE [Suspect]
     Active Substance: METHOTREXATE
     Indication: Burkitt^s lymphoma
     Dosage: GMALL 2002 PROTOCOL, CYCLE B AND CYCLE C
     Route: 065
  3. RITUXIMAB [Suspect]
     Active Substance: RITUXIMAB
     Indication: Burkitt^s lymphoma
     Dosage: GMALL 2002 PROTOCOL, CYCLE A, CYCLE B, CYCLE C
     Route: 065
  4. DOXORUBICIN [Suspect]
     Active Substance: DOXORUBICIN
     Indication: Burkitt^s lymphoma
     Dosage: GMALL 2002 PROTOCOL, CYCLE B
     Route: 065
  5. LEUCOVORIN [Suspect]
     Active Substance: LEUCOVORIN\LEUCOVORIN CALCIUM
     Indication: Burkitt^s lymphoma
     Dosage: GMALL 2002 PROTOCOL, CYCLE A, CYCLE B, CYCLE C
     Route: 065
  6. DEXAMETHASONE ACETATE [Suspect]
     Active Substance: DEXAMETHASONE ACETATE
     Indication: Burkitt^s lymphoma
     Dosage: GMALL 2002 PROTOCOL, CYCLE A, CYCLE B, CYCLE C
     Route: 065
  7. IFOSFAMIDE [Suspect]
     Active Substance: IFOSFAMIDE
     Indication: Burkitt^s lymphoma
     Dosage: GMALL 2002 PROTOCOL, CYCLE A
     Route: 065
  8. CYCLOPHOSPHAMIDE [Suspect]
     Active Substance: CYCLOPHOSPHAMIDE
     Indication: Burkitt^s lymphoma
     Dosage: GMALL 2002 PROTOCOL, CYCLE B
     Route: 065
  9. ETOPOSIDE [Suspect]
     Active Substance: ETOPOSIDE
     Indication: Burkitt^s lymphoma
     Dosage: GMALL 2002 PROTOCOL, CYCLE A, CYCLE C
     Route: 065
  10. VINCRISTINE [Suspect]
     Active Substance: VINCRISTINE
     Indication: Burkitt^s lymphoma
     Dosage: GMALL 2002 PROTOCOL, CYCLE A, CYCLE B, CYCLE C
     Route: 065
  11. CYTARABINE [Suspect]
     Active Substance: CYTARABINE
     Indication: Burkitt^s lymphoma
     Dosage: GMALL 2002 PROTOCOL, CYCLE A, CYCLE B, CYCLE C
     Route: 065

REACTIONS (5)
  - Febrile neutropenia [Unknown]
  - Pseudomonal sepsis [Unknown]
  - Keratitis [Unknown]
  - Stomatitis [Unknown]
  - Cerebrospinal fluid leakage [Unknown]
